FAERS Safety Report 21240532 (Version 2)
Quarter: 2022Q3

REPORT INFORMATION
  Report Type: Spontaneous
  Country: US (occurrence: None)
  Receive Date: 20220822
  Receipt Date: 20220914
  Transmission Date: 20221027
  Serious: Yes (Hospitalization)
  Sender: FDA-Public Use
  Company Number: US-MDD US Operations-MDD202208-002488

PATIENT
  Age: 65 Year
  Sex: Female

DRUGS (7)
  1. APOKYN [Suspect]
     Active Substance: APOMORPHINE HYDROCHLORIDE
     Indication: Product used for unknown indication
     Dosage: NOT PROVIDED
     Dates: end: 202106
  2. LEVODOPA [Concomitant]
     Active Substance: LEVODOPA
     Dosage: 25-100 MG
  3. LEVODOPA [Concomitant]
     Active Substance: LEVODOPA
     Dosage: 25-100 MG
  4. LEVODOPA [Concomitant]
     Active Substance: LEVODOPA
     Dosage: 25-100 MG
  5. LEVODOPA [Concomitant]
     Active Substance: LEVODOPA
     Dosage: 25-100 MG
  6. REQUIP [Concomitant]
     Active Substance: ROPINIROLE HYDROCHLORIDE
     Indication: Parkinson^s disease
  7. AMANTADINE [Concomitant]
     Active Substance: AMANTADINE
     Indication: Parkinson^s disease

REACTIONS (1)
  - Spinal operation [Recovered/Resolved]

NARRATIVE: CASE EVENT DATE: 20210615
